FAERS Safety Report 8712074 (Version 3)
Quarter: 2014Q1

REPORT INFORMATION
  Report Type: Spontaneous
  Country: US (occurrence: US)
  Receive Date: 20120807
  Receipt Date: 20140110
  Transmission Date: 20141002
  Serious: Yes (Disabling)
  Sender: FDA-Public Use
  Company Number: US-009507513-1103USA03597

PATIENT
  Sex: Male
  Weight: 88.45 kg

DRUGS (3)
  1. PROPECIA [Suspect]
     Indication: ANDROGENETIC ALOPECIA
     Dosage: 1 MG, UNK
     Route: 048
  2. PROPECIA [Suspect]
     Indication: ALOPECIA
  3. PROSCAR [Suspect]
     Indication: ALOPECIA
     Dosage: 5 MG, UNK
     Route: 048
     Dates: start: 200509

REACTIONS (35)
  - Hypertension [Unknown]
  - Blood cholesterol increased [Unknown]
  - Partner stress [Unknown]
  - Libido decreased [Unknown]
  - Erectile dysfunction [Unknown]
  - Sexual dysfunction [Unknown]
  - Anxiety [Unknown]
  - Sexual dysfunction [Unknown]
  - Intentional drug misuse [Unknown]
  - Contusion [Unknown]
  - Gastrooesophageal reflux disease [Unknown]
  - Vomiting [Unknown]
  - Diarrhoea [Unknown]
  - Upper-airway cough syndrome [Unknown]
  - Viral infection [Unknown]
  - Enterocolitis [Unknown]
  - Herpes simplex [Unknown]
  - Axillary mass [Unknown]
  - Hypothyroidism [Unknown]
  - Contusion [Unknown]
  - Functional gastrointestinal disorder [Unknown]
  - Blood alcohol increased [Unknown]
  - Hyperlipidaemia [Unknown]
  - Fatigue [Unknown]
  - Burns second degree [Unknown]
  - Premature ejaculation [Unknown]
  - Blood testosterone decreased [Unknown]
  - Sleep disorder [Unknown]
  - Headache [Unknown]
  - Rhinitis allergic [Unknown]
  - Panic attack [Unknown]
  - Fear [Unknown]
  - Anxiety [Unknown]
  - Suicidal ideation [Unknown]
  - Alcohol abuse [Unknown]
